FAERS Safety Report 23426120 (Version 1)
Quarter: 2024Q1

REPORT INFORMATION
  Report Type: Report from Study
  Country: US (occurrence: US)
  Receive Date: 20240122
  Receipt Date: 20240122
  Transmission Date: 20240409
  Serious: Yes (Other)
  Sender: FDA-Public Use
  Company Number: US-SA-2024SA017961

PATIENT
  Age: 66 Year
  Sex: Male

DRUGS (57)
  1. OXALIPLATIN [Suspect]
     Active Substance: OXALIPLATIN
     Indication: Colorectal cancer
     Dosage: 155 MG
     Route: 041
     Dates: start: 20221129, end: 20221129
  2. OXALIPLATIN [Suspect]
     Active Substance: OXALIPLATIN
     Dosage: 155 MG
     Route: 041
     Dates: start: 20221213, end: 20221213
  3. OXALIPLATIN [Suspect]
     Active Substance: OXALIPLATIN
     Dosage: 155 MG
     Route: 041
     Dates: start: 20221228, end: 20221228
  4. OXALIPLATIN [Suspect]
     Active Substance: OXALIPLATIN
     Dosage: 155 MG
     Route: 041
     Dates: start: 20230110, end: 20230110
  5. OXALIPLATIN [Suspect]
     Active Substance: OXALIPLATIN
     Dosage: 120 UNK
     Route: 041
     Dates: start: 20230207, end: 20230207
  6. OXALIPLATIN [Suspect]
     Active Substance: OXALIPLATIN
     Dosage: 120 UNK
     Route: 041
     Dates: start: 20230221, end: 20230221
  7. OXALIPLATIN [Suspect]
     Active Substance: OXALIPLATIN
     Dosage: 120 UNK
     Route: 041
     Dates: start: 20230307, end: 20230307
  8. OXALIPLATIN [Suspect]
     Active Substance: OXALIPLATIN
     Dosage: 120 UNK
     Route: 041
     Dates: start: 20230404, end: 20230404
  9. OXALIPLATIN [Suspect]
     Active Substance: OXALIPLATIN
     Dosage: 95 UNK
     Route: 041
     Dates: start: 20230404, end: 20230404
  10. OXALIPLATIN [Suspect]
     Active Substance: OXALIPLATIN
     Dosage: 95 UNK
     Route: 041
     Dates: start: 20230425, end: 20230425
  11. OXALIPLATIN [Suspect]
     Active Substance: OXALIPLATIN
     Dosage: 95 UNK
     Route: 041
     Dates: start: 20230509, end: 20230509
  12. OXALIPLATIN [Suspect]
     Active Substance: OXALIPLATIN
     Dosage: 95 UNK
     Route: 041
     Dates: start: 20230523, end: 20230523
  13. LEUCOVORIN [Suspect]
     Active Substance: LEUCOVORIN\LEUCOVORIN CALCIUM
     Indication: Colorectal cancer
     Dosage: 400 MG
     Route: 041
     Dates: start: 20221129, end: 20221129
  14. LEUCOVORIN [Suspect]
     Active Substance: LEUCOVORIN\LEUCOVORIN CALCIUM
     Dosage: 400 MG
     Route: 041
     Dates: start: 20221213, end: 20221213
  15. LEUCOVORIN [Suspect]
     Active Substance: LEUCOVORIN\LEUCOVORIN CALCIUM
     Dosage: 400 MG
     Route: 041
     Dates: start: 20221228, end: 20221228
  16. LEUCOVORIN [Suspect]
     Active Substance: LEUCOVORIN\LEUCOVORIN CALCIUM
     Dosage: 400 MG
     Route: 041
     Dates: start: 20230110, end: 20230110
  17. LEUCOVORIN [Suspect]
     Active Substance: LEUCOVORIN\LEUCOVORIN CALCIUM
     Dosage: 99 MG
     Route: 041
     Dates: start: 20230207, end: 20230207
  18. LEUCOVORIN [Suspect]
     Active Substance: LEUCOVORIN\LEUCOVORIN CALCIUM
     Dosage: 99 MG
     Route: 041
     Dates: start: 20230221, end: 20230221
  19. LEUCOVORIN [Suspect]
     Active Substance: LEUCOVORIN\LEUCOVORIN CALCIUM
     Dosage: 99 MG
     Route: 041
     Dates: start: 20230404, end: 20230404
  20. FLUOROURACIL [Suspect]
     Active Substance: FLUOROURACIL
     Indication: Colorectal cancer
     Dosage: 4500 MG
     Route: 042
     Dates: start: 20221129, end: 20221129
  21. FLUOROURACIL [Suspect]
     Active Substance: FLUOROURACIL
     Dosage: 700 MG
     Route: 040
     Dates: start: 20221129, end: 20221129
  22. FLUOROURACIL [Suspect]
     Active Substance: FLUOROURACIL
     Dosage: 4500 MG
     Route: 042
     Dates: start: 20221213, end: 20221213
  23. FLUOROURACIL [Suspect]
     Active Substance: FLUOROURACIL
     Dosage: 700 MG
     Route: 040
     Dates: start: 20221213, end: 20221213
  24. FLUOROURACIL [Suspect]
     Active Substance: FLUOROURACIL
     Dosage: 4500 MG
     Route: 042
     Dates: start: 20221228, end: 20221228
  25. FLUOROURACIL [Suspect]
     Active Substance: FLUOROURACIL
     Dosage: 700 MG
     Route: 040
     Dates: start: 20221228, end: 20221228
  26. FLUOROURACIL [Suspect]
     Active Substance: FLUOROURACIL
     Dosage: 4500 MG
     Route: 042
     Dates: start: 20230110, end: 20230110
  27. FLUOROURACIL [Suspect]
     Active Substance: FLUOROURACIL
     Dosage: 700 MG
     Route: 040
     Dates: start: 20230110, end: 20230110
  28. FLUOROURACIL [Suspect]
     Active Substance: FLUOROURACIL
     Dosage: 4500 MG
     Route: 042
     Dates: start: 20230207, end: 20230207
  29. FLUOROURACIL [Suspect]
     Active Substance: FLUOROURACIL
     Dosage: 600 MG
     Route: 040
     Dates: start: 20230207, end: 20230207
  30. FLUOROURACIL [Suspect]
     Active Substance: FLUOROURACIL
     Dosage: 4500 MG
     Route: 042
     Dates: start: 20230221, end: 20230221
  31. FLUOROURACIL [Suspect]
     Active Substance: FLUOROURACIL
     Dosage: 350 MG
     Route: 040
     Dates: start: 20230221, end: 20230221
  32. ETRUMADENANT [Suspect]
     Active Substance: ETRUMADENANT
     Indication: Colorectal cancer
     Dosage: 150 MG
     Route: 048
     Dates: start: 20221130, end: 20221227
  33. ETRUMADENANT [Suspect]
     Active Substance: ETRUMADENANT
     Dosage: 150 MG
     Route: 048
     Dates: start: 20221212, end: 20221227
  34. ETRUMADENANT [Suspect]
     Active Substance: ETRUMADENANT
     Dosage: 150 MG
     Route: 048
     Dates: start: 20221213, end: 20221213
  35. ETRUMADENANT [Suspect]
     Active Substance: ETRUMADENANT
     Dosage: 150 MG
     Route: 048
     Dates: start: 20221214, end: 20221214
  36. ETRUMADENANT [Suspect]
     Active Substance: ETRUMADENANT
     Dosage: 150 MG
     Route: 048
     Dates: start: 20231024, end: 20231120
  37. ZIMBERELIMAB [Suspect]
     Active Substance: ZIMBERELIMAB
     Indication: Colorectal cancer
     Dosage: 480 MG
     Route: 041
     Dates: start: 20221228, end: 20221228
  38. ZIMBERELIMAB [Suspect]
     Active Substance: ZIMBERELIMAB
     Dosage: 480 MG
     Route: 041
     Dates: start: 20221228, end: 20230207
  39. ZIMBERELIMAB [Suspect]
     Active Substance: ZIMBERELIMAB
     Dosage: 480 MG
     Route: 041
     Dates: start: 20230307, end: 20230307
  40. ZIMBERELIMAB [Suspect]
     Active Substance: ZIMBERELIMAB
     Dosage: 480 MG
     Route: 041
     Dates: start: 20230404, end: 20230404
  41. ZIMBERELIMAB [Suspect]
     Active Substance: ZIMBERELIMAB
     Dosage: 480 MG
     Route: 041
     Dates: start: 20230509, end: 20230509
  42. ZIMBERELIMAB [Suspect]
     Active Substance: ZIMBERELIMAB
     Dosage: 480 MG
     Route: 041
     Dates: start: 20230919, end: 20230919
  43. BEVACIZUMAB [Suspect]
     Active Substance: BEVACIZUMAB
     Indication: Colorectal cancer
     Dosage: 350 MG, TOTAL
     Route: 041
     Dates: start: 20231213, end: 20231213
  44. BEVACIZUMAB [Suspect]
     Active Substance: BEVACIZUMAB
     Dosage: 350 MG, TOTAL
     Route: 041
     Dates: start: 20221129, end: 20221129
  45. BEVACIZUMAB [Suspect]
     Active Substance: BEVACIZUMAB
     Dosage: 350 MG, TOTAL
     Route: 041
     Dates: start: 20230523, end: 20230523
  46. BEVACIZUMAB [Suspect]
     Active Substance: BEVACIZUMAB
     Dosage: 350 MG, TOTAL
     Route: 041
     Dates: start: 20230712, end: 20230712
  47. BEVACIZUMAB [Suspect]
     Active Substance: BEVACIZUMAB
     Dosage: 350 MG, TOTAL
     Route: 041
     Dates: start: 20231213, end: 20231213
  48. COMPAZINE [Concomitant]
     Active Substance: PROCHLORPERAZINE MALEATE
     Dosage: UNK
     Dates: start: 20221130
  49. CIPROFLOXACIN [Concomitant]
     Active Substance: CIPROFLOXACIN
     Dosage: UNK
     Dates: start: 20231227
  50. SODIUM CHLORIDE [Concomitant]
     Active Substance: SODIUM CHLORIDE
     Dosage: UNK
     Dates: start: 20231227, end: 20231227
  51. OXYCODONE [Concomitant]
     Active Substance: OXYCODONE
     Dosage: UNK
     Dates: start: 20231227
  52. ALPRAZOLAM [Concomitant]
     Active Substance: ALPRAZOLAM
     Dosage: UNK
     Dates: start: 19740701
  53. RISPERIDONE [Concomitant]
     Active Substance: RISPERIDONE
     Dosage: UNK
     Dates: start: 20221130
  54. COMPAZINE [Concomitant]
     Active Substance: PROCHLORPERAZINE MALEATE
  55. MIRALAX [Concomitant]
     Active Substance: POLYETHYLENE GLYCOL 3350
     Dosage: UNK
     Dates: start: 20230822
  56. TRAMADOL [Concomitant]
     Active Substance: TRAMADOL\TRAMADOL HYDROCHLORIDE
     Dosage: UNK
     Dates: start: 20231107, end: 20231227
  57. SENNA LEAVES [SENNA SPP.] [Concomitant]
     Dosage: UNK
     Dates: start: 20231204

REACTIONS (2)
  - Perirectal abscess [Unknown]
  - Gastrointestinal disorder [Unknown]
